FAERS Safety Report 8600844-6 (Version None)
Quarter: 2012Q3

REPORT INFORMATION
  Report Type: 
  Country: None (occurrence: None)
  Receive Date: 20120817
  Receipt Date: 20120807
  Transmission Date: 20120928
  Serious: Yes (Hospitalization)
  Sender: FDA-Public Use
  Company Number: US-ELI_LILLY_AND_COMPANY-US201104002008

PATIENT
  Sex: Male

DRUGS (12)
  1. ANDROGEL [Concomitant]
     Dosage: UNK, 2/W
  2. FORTEO [Suspect]
  3. MAGNESIUM OXIDE [Concomitant]
     Dosage: 400 MG, QD
  4. FLOMAX [Concomitant]
     Dosage: 0.4 MG, QD
  5. FORTEO [Suspect]
     Dosage: 20 UG, QD
  6. ASPIRIN [Concomitant]
     Dosage: 81 MG, QD
  7. VITAMIN D [Concomitant]
     Dosage: 50000 IU, OTHER
  8. TYLENOL                                 /SCH/ [Concomitant]
     Indication: PAIN
     Dosage: UNK, PRN
  9. CALCIUM [Concomitant]
  10. ZOLOFT [Concomitant]
     Dosage: 50 MG, QD
  11. NEXIUM [Concomitant]
     Dosage: UNK, PRN
  12. FORTEO [Suspect]
     Indication: OSTEOPOROSIS
     Dosage: 20 UG, QD
     Route: 065
     Dates: start: 20110301

REACTIONS (10)
  - EATING DISORDER [None]
  - CONSTIPATION [None]
  - ABDOMINAL PAIN [None]
  - HERNIA REPAIR [None]
  - DRUG DOSE OMISSION [None]
  - WEIGHT DECREASED [None]
  - COLON OPERATION [None]
  - CROHN'S DISEASE [None]
  - IRRITABLE BOWEL SYNDROME [None]
  - PARENTERAL NUTRITION [None]
